FAERS Safety Report 4677586-5 (Version None)
Quarter: 2005Q2

REPORT INFORMATION
  Report Type: 
  Country: None (occurrence: None)
  Receive Date: 20050526
  Receipt Date: 20050526
  Transmission Date: 20051028
  Serious: Yes (Other)
  Sender: FDA-Public Use
  Company Number: None

PATIENT
  Sex: Female
  Weight: 45.3597 kg

DRUGS (2)
  1. FENTANYL [Suspect]
     Indication: ABDOMINAL PAIN
     Dosage: 50 MCG Q 72 HOUR
     Dates: start: 20050319
  2. FENTANYL [Suspect]
     Indication: PANCREATITIS
     Dosage: 50 MCG Q 72 HOUR
     Dates: start: 20050319

REACTIONS (4)
  - CONDITION AGGRAVATED [None]
  - DECREASED ACTIVITY [None]
  - PAIN [None]
  - THERAPEUTIC RESPONSE UNEXPECTED WITH DRUG SUBSTITUTION [None]
